FAERS Safety Report 14692622 (Version 1)
Quarter: 2018Q1

REPORT INFORMATION
  Report Type: Spontaneous
  Country: NL (occurrence: NL)
  Receive Date: 20180329
  Receipt Date: 20180329
  Transmission Date: 20180509
  Serious: Yes (Other)
  Sender: FDA-Public Use
  Company Number: NL-AXELLIA-001489

PATIENT
  Age: 13 Month
  Sex: Male

DRUGS (2)
  1. ITRACONAZOLE. [Interacting]
     Active Substance: ITRACONAZOLE
     Indication: PROPHYLAXIS
  2. VORICONAZOLE. [Suspect]
     Active Substance: VORICONAZOLE
     Indication: ASPERGILLUS INFECTION
     Dosage: LOADING DOSE
     Route: 042

REACTIONS (4)
  - Drug level increased [Unknown]
  - Cardiovascular insufficiency [Unknown]
  - Hepatotoxicity [Unknown]
  - Drug interaction [Unknown]
